FAERS Safety Report 5304269-0 (Version None)
Quarter: 2007Q2

REPORT INFORMATION
  Report Type: 
  Country: None (occurrence: None)
  Receive Date: 20070423
  Receipt Date: 20070410
  Transmission Date: 20071010
  Serious: Yes (Other)
  Sender: FDA-Public Use
  Company Number: PHBS2007JP06361

PATIENT
  Age: 30 Year
  Sex: Male

DRUGS (3)
  1. DIOVAN [Suspect]
     Indication: HYPERTENSION
     Dosage: 80 MG/DAY
     Route: 048
     Dates: start: 20020401
  2. AMLODIPINE [Suspect]
     Dosage: 5 MG, UNK
     Route: 048
     Dates: end: 20070410
  3. ALDACTAZIDE [Suspect]
     Dates: end: 20070410

REACTIONS (3)
  - IMMOBILE [None]
  - MUSCLE DISORDER [None]
  - MYOPATHY [None]
